FAERS Safety Report 20846028 (Version 1)
Quarter: 2022Q2

REPORT INFORMATION
  Report Type: Spontaneous
  Country: US (occurrence: US)
  Receive Date: 20220518
  Receipt Date: 20220518
  Transmission Date: 20220720
  Serious: Yes (Hospitalization)
  Sender: FDA-Public Use
  Company Number: US-NOVARTISTESTPH-NVSC2020US292621

PATIENT
  Age: 5 Year
  Sex: Male

DRUGS (1)
  1. KYMRIAH [Suspect]
     Active Substance: TISAGENLECLEUCEL
     Indication: Acute lymphocytic leukaemia recurrent
     Dosage: UNK, ONCE/SINGLE
     Route: 042

REACTIONS (2)
  - Cytokine release syndrome [Recovering/Resolving]
  - Neurotoxicity [Recovering/Resolving]
